FAERS Safety Report 20746300 (Version 4)
Quarter: 2022Q4

REPORT INFORMATION
  Report Type: Spontaneous
  Country: CA (occurrence: CA)
  Receive Date: 20220425
  Receipt Date: 20221123
  Transmission Date: 20230113
  Serious: Yes (Other)
  Sender: FDA-Public Use
  Company Number: CA-PFIZER INC-2021745182

PATIENT
  Age: 64 Year
  Sex: Female
  Weight: 67 kg

DRUGS (8)
  1. RUXIENCE [Suspect]
     Active Substance: RITUXIMAB-PVVR
     Indication: Rheumatoid arthritis
     Dosage: 1000 MG SINGLE DOSE
     Route: 042
     Dates: start: 20210512, end: 20210512
  2. RUXIENCE [Suspect]
     Active Substance: RITUXIMAB-PVVR
     Dosage: 800 MG SINGLE DOSE
     Route: 042
     Dates: start: 20211015, end: 20211015
  3. RUXIENCE [Suspect]
     Active Substance: RITUXIMAB-PVVR
     Dosage: 900 MG SINGLE DOSE
     Route: 042
     Dates: start: 20211015, end: 20211015
  4. RUXIENCE [Suspect]
     Active Substance: RITUXIMAB-PVVR
     Dosage: 800 MG SINGLE DOSE
     Route: 042
     Dates: start: 20220520, end: 20220520
  5. RUXIENCE [Suspect]
     Active Substance: RITUXIMAB-PVVR
     Dosage: 800 MG SINGLE DOSE
     Route: 042
     Dates: start: 20220520, end: 20220520
  6. RUXIENCE [Suspect]
     Active Substance: RITUXIMAB-PVVR
     Dosage: 800 MG SINGLE DOSE
     Route: 042
     Dates: start: 20221118, end: 20221118
  7. CELEBREX [Concomitant]
     Active Substance: CELECOXIB
     Dosage: 400 MG, 1X/DAY
     Route: 065
  8. MORPHINE SULFATE [Concomitant]
     Active Substance: MORPHINE SULFATE
     Dosage: UNK

REACTIONS (4)
  - Spinal compression fracture [Unknown]
  - Limb injury [Unknown]
  - Off label use [Unknown]
  - Off label use [Unknown]

NARRATIVE: CASE EVENT DATE: 20220501
